FAERS Safety Report 5034000-8 (Version None)
Quarter: 2006Q2

REPORT INFORMATION
  Report Type: 
  Country: None (occurrence: None)
  Receive Date: 20060626
  Receipt Date: 20060607
  Transmission Date: 20061013
  Serious: Yes (Other)
  Sender: FDA-Public Use
  Company Number: PHBS2006JP08682

PATIENT
  Age: 83 Year
  Sex: Male

DRUGS (4)
  1. CARBAMAZEPINE [Suspect]
     Indication: MOOD ALTERED
     Dosage: 300 MG/DAY
     Route: 065
  2. ASPIRIN [Concomitant]
     Dosage: 100 MG/DAY
     Route: 065
  3. SPIRONOLACTONE [Concomitant]
     Dosage: 25 MG/DAY
     Route: 065
  4. IRSOGLADINE [Concomitant]
     Dosage: 0.5 G/DAY
     Route: 065

REACTIONS (6)
  - ATRIOVENTRICULAR BLOCK FIRST DEGREE [None]
  - HEART RATE DECREASED [None]
  - NODAL RHYTHM [None]
  - SICK SINUS SYNDROME [None]
  - SINUS ARREST [None]
  - SUPRAVENTRICULAR EXTRASYSTOLES [None]
